FAERS Safety Report 8162934-4 (Version None)
Quarter: 2012Q1

REPORT INFORMATION
  Report Type: 
  Country: None (occurrence: None)
  Receive Date: 20120224
  Receipt Date: 20120215
  Transmission Date: 20120608
  Serious: No
  Sender: FDA-Public Use
  Company Number: US-BAYER-2012-016518

PATIENT
  Age: 27 Year
  Sex: Male
  Weight: 82 kg

DRUGS (1)
  1. ALEVE (CAPLET) [Suspect]
     Indication: HANGOVER
     Dosage: UNK
     Route: 048
     Dates: start: 20120215

REACTIONS (2)
  - NO ADVERSE EVENT [None]
  - DIZZINESS [None]
